FAERS Safety Report 9802855 (Version 1)
Quarter: 2014Q1

REPORT INFORMATION
  Report Type: Spontaneous
  Country: US (occurrence: None)
  Receive Date: 20140106
  Receipt Date: 20140106
  Transmission Date: 20141002
  Serious: No
  Sender: FDA-Public Use
  Company Number: None

PATIENT
  Age: 35 Year
  Sex: Female
  Weight: 72.58 kg

DRUGS (2)
  1. TRINESSA [Suspect]
     Indication: ACNE
     Dosage: 1 PILL
     Route: 048
     Dates: start: 20131227, end: 20140103
  2. AMOXICILLIN [Concomitant]
     Indication: EAR INFECTION
     Dosage: 1 PILL
     Route: 048
     Dates: start: 20131225, end: 20140103

REACTIONS (1)
  - Depression [None]
